FAERS Safety Report 23995051 (Version 2)
Quarter: 2024Q3

REPORT INFORMATION
  Report Type: Spontaneous
  Country: US (occurrence: US)
  Receive Date: 20240620
  Receipt Date: 20240711
  Transmission Date: 20241017
  Serious: No
  Sender: ROCHE
  Company Number: US-ROCHE-10000002833

PATIENT
  Age: 72 Year
  Sex: Female

DRUGS (1)
  1. EVRYSDI [Suspect]
     Active Substance: RISDIPLAM
     Indication: Spinal muscular atrophy
     Route: 048
     Dates: start: 20240613

REACTIONS (3)
  - Chills [Unknown]
  - Pyrexia [Unknown]
  - Hallucination [Unknown]

NARRATIVE: CASE EVENT DATE: 20240613
